FAERS Safety Report 4828036-7 (Version None)
Quarter: 2005Q4

REPORT INFORMATION
  Report Type: 
  Country: None (occurrence: None)
  Receive Date: 20051110
  Receipt Date: 20051027
  Transmission Date: 20060501
  Serious: Yes (Other)
  Sender: FDA-Public Use
  Company Number: 2005147371

PATIENT
  Sex: 0

DRUGS (1)
  1. DRAMAMINE [Suspect]
     Dosage: 16 TABS ONCE, ORAL
     Route: 048

REACTIONS (2)
  - OVERDOSE [None]
  - PSYCHOMOTOR HYPERACTIVITY [None]
